FAERS Safety Report 18340255 (Version 3)
Quarter: 2024Q1

REPORT INFORMATION
  Report Type: Other
  Country: GR (occurrence: GR)
  Receive Date: 20201002
  Receipt Date: 20240325
  Transmission Date: 20240410
  Serious: Yes (Life-Threatening, Other)
  Sender: FDA-Public Use
  Company Number: GR-MERCK HEALTHCARE KGAA-9188603

PATIENT
  Age: 54 Year
  Sex: Male
  Weight: 80 kg

DRUGS (15)
  1. METFORMIN [Interacting]
     Active Substance: METFORMIN HYDROCHLORIDE
     Indication: Type 2 diabetes mellitus
  2. LEVETIRACETAM [Interacting]
     Active Substance: LEVETIRACETAM
     Indication: Product used for unknown indication
  3. RISPERIDONE [Interacting]
     Active Substance: RISPERIDONE
     Indication: Product used for unknown indication
  4. OMEPRAZOLE [Interacting]
     Active Substance: OMEPRAZOLE
     Indication: Product used for unknown indication
  5. OMEPRAZOLE [Interacting]
     Active Substance: OMEPRAZOLE
  6. PREGABALIN [Interacting]
     Active Substance: PREGABALIN
     Indication: Product used for unknown indication
  7. FENTANYL [Interacting]
     Active Substance: FENTANYL\FENTANYL CITRATE
     Indication: General anaesthesia
     Route: 042
  8. CLOBAZAM [Interacting]
     Active Substance: CLOBAZAM
     Indication: Product used for unknown indication
  9. DEXMEDETOMIDINE [Interacting]
     Active Substance: DEXMEDETOMIDINE
     Indication: General anaesthesia
     Dosage: INFUSION, LOADING DOSE
     Route: 042
  10. DEXMEDETOMIDINE [Interacting]
     Active Substance: DEXMEDETOMIDINE
     Dosage: MAINTENANCE DOSE OF 0.4MCG/KG/H
     Route: 040
  11. OXCARBAZEPINE [Interacting]
     Active Substance: OXCARBAZEPINE
     Indication: Product used for unknown indication
  12. EZETIMIBE [Suspect]
     Active Substance: EZETIMIBE
     Indication: Dyslipidaemia
  13. EBASTINE [Concomitant]
     Active Substance: EBASTINE
     Indication: General anaesthesia
     Dosage: FREQUENCY TEXT: EVERY 2 DAYS
     Route: 067
  14. ICOSAPENT [Concomitant]
     Active Substance: ICOSAPENT
     Indication: General anaesthesia
  15. RINGERS LACTATE [CALCIUM CHLORIDE;POTASSIUM CHLORIDE;SODIUM LACTATE] [Concomitant]
     Indication: General anaesthesia
     Route: 040

REACTIONS (4)
  - Bradycardia [Recovered/Resolved]
  - Blood pressure decreased [Recovered/Resolved]
  - Cardiac arrest [Recovered/Resolved]
  - Cardiac arrest [Recovered/Resolved]
